FAERS Safety Report 4656665-2 (Version None)
Quarter: 2005Q2

REPORT INFORMATION
  Report Type: 
  Country: None (occurrence: None)
  Receive Date: 20050331
  Receipt Date: 20041207
  Transmission Date: 20051028
  Serious: Yes (Hospitalization)
  Sender: FDA-Public Use
  Company Number: PRA100638

PATIENT
  Age: 75 Year
  Sex: Male

DRUGS (6)
  1. NEULASTA [Suspect]
     Indication: CHEMOTHERAPY
     Dosage: 6 MG, 1 IN 2 WEEKS, SC
     Route: 058
     Dates: start: 20040925, end: 20041202
  2. PACLITAXEL [Suspect]
  3. SALMETEROL HYDROXYNAPHTHOATE [Concomitant]
  4. ALBUTEROL SULFATE [Concomitant]
  5. TRIAMCINOLONE ACETONIDE [Concomitant]
  6. ARANESP [Concomitant]

REACTIONS (5)
  - DYSPNOEA [None]
  - FATIGUE [None]
  - HAEMOGLOBIN DECREASED [None]
  - MYALGIA [None]
  - PYREXIA [None]
